FAERS Safety Report 25218100 (Version 3)
Quarter: 2025Q3

REPORT INFORMATION
  Report Type: Report from Study
  Country: US (occurrence: US)
  Receive Date: 20250421
  Receipt Date: 20250922
  Transmission Date: 20251020
  Serious: No
  Sender: SUNOVION
  Company Number: US-SUMITOMO PHARMA SWITZERLAND GMBH-2025SPA003646

PATIENT
  Age: 73 Year
  Sex: Male

DRUGS (15)
  1. ORGOVYX [Suspect]
     Active Substance: RELUGOLIX
     Indication: Prostate cancer
     Route: 048
  2. ORGOVYX [Suspect]
     Active Substance: RELUGOLIX
     Dosage: 120 MG, QD
     Route: 048
     Dates: start: 202409
  3. ATORVASTATIN [Concomitant]
     Active Substance: ATORVASTATIN
  4. JARDIANCE [Concomitant]
     Active Substance: EMPAGLIFLOZIN
  5. LANTUS [Concomitant]
     Active Substance: INSULIN GLARGINE
  6. LISINOPRIL [Concomitant]
     Active Substance: LISINOPRIL
  7. LORATADINE [Concomitant]
     Active Substance: LORATADINE
  8. MELOXICAM [Concomitant]
     Active Substance: MELOXICAM
  9. METFORMIN [Concomitant]
     Active Substance: METFORMIN HYDROCHLORIDE
  10. METOPROLOL [Concomitant]
     Active Substance: METOPROLOL
  11. OMEPRAZOLE [Concomitant]
     Active Substance: OMEPRAZOLE
  12. OZEMPIC [Concomitant]
     Active Substance: SEMAGLUTIDE
  13. TAMSULOSIN [Concomitant]
     Active Substance: TAMSULOSIN
  14. SOLOSTAR [Concomitant]
     Active Substance: DEVICE
  15. METOPROLOL SUCCINATE [Concomitant]
     Active Substance: METOPROLOL SUCCINATE

REACTIONS (5)
  - Pain [Unknown]
  - Groin pain [Not Recovered/Not Resolved]
  - Swelling [Not Recovered/Not Resolved]
  - Genital infection male [Unknown]
  - Genital pain [Unknown]
